FAERS Safety Report 18857164 (Version 1)
Quarter: 2021Q1

REPORT INFORMATION
  Report Type: Spontaneous
  Country: JP (occurrence: JP)
  Receive Date: 20210208
  Receipt Date: 20210208
  Transmission Date: 20210420
  Serious: Yes (Death, Hospitalization)
  Sender: FDA-Public Use
  Company Number: JP-AMGEN-JPNSP2021018408

PATIENT
  Age: 79 Year
  Sex: Male
  Weight: 60.5 kg

DRUGS (20)
  1. ROCALTROL [Concomitant]
     Active Substance: CALCITRIOL
     Dosage: 0.5 UG, QW
     Route: 042
     Dates: start: 20191214, end: 20200104
  2. ROCALTROL [Concomitant]
     Active Substance: CALCITRIOL
     Dosage: 1.0 UG, QW
     Route: 042
     Dates: start: 20200111, end: 20200208
  3. ROCALTROL [Concomitant]
     Active Substance: CALCITRIOL
     Dosage: 1.375 UG, QW
     Route: 042
     Dates: start: 20200328
  4. PARSABIV [Suspect]
     Active Substance: ETELCALCETIDE HYDROCHLORIDE
     Dosage: 5 MG, TWICE A MONTH
     Route: 010
     Dates: start: 20190720
  5. MIRCERA [Concomitant]
     Active Substance: METHOXY POLYETHYLENE GLYCOL-EPOETIN BETA
     Dosage: 50 UG, EVERYDAY
     Route: 065
     Dates: start: 20190209, end: 20190209
  6. MIRCERA [Concomitant]
     Active Substance: METHOXY POLYETHYLENE GLYCOL-EPOETIN BETA
     Dosage: 25 UG, EVERYDAY
     Route: 065
     Dates: start: 20191109, end: 20191109
  7. ROCALTROL [Concomitant]
     Active Substance: CALCITRIOL
     Dosage: 1.5 UG, QW
     Route: 042
     Dates: start: 20200314, end: 20200321
  8. PARSABIV [Suspect]
     Active Substance: ETELCALCETIDE HYDROCHLORIDE
     Dosage: 2.5 MG, TWICE A MONTH
     Route: 010
     Dates: start: 20190727
  9. MIRCERA [Concomitant]
     Active Substance: METHOXY POLYETHYLENE GLYCOL-EPOETIN BETA
     Dosage: 225 UG, MONTHLY
     Route: 065
     Dates: start: 20190518, end: 20190928
  10. ROCALTROL [Concomitant]
     Active Substance: CALCITRIOL
     Dosage: 1.25 UG, QW
     Route: 042
     Dates: start: 20200215, end: 20200307
  11. PARSABIV [Suspect]
     Active Substance: ETELCALCETIDE HYDROCHLORIDE
     Indication: HYPERPARATHYROIDISM SECONDARY
     Dosage: 5 MG, QW
     Route: 010
     Dates: start: 20190713, end: 20190713
  12. MIRCERA [Concomitant]
     Active Substance: METHOXY POLYETHYLENE GLYCOL-EPOETIN BETA
     Dosage: 150 UG, MONTHLY
     Route: 065
     Dates: start: 20190302, end: 20190413
  13. MIRCERA [Concomitant]
     Active Substance: METHOXY POLYETHYLENE GLYCOL-EPOETIN BETA
     Dosage: 25 UG, QW
     Route: 065
     Dates: start: 20180630, end: 20180721
  14. MIRCERA [Concomitant]
     Active Substance: METHOXY POLYETHYLENE GLYCOL-EPOETIN BETA
     Dosage: 125 UG, MONTHLY
     Route: 065
     Dates: start: 20180728, end: 20190202
  15. MIRCERA [Concomitant]
     Active Substance: METHOXY POLYETHYLENE GLYCOL-EPOETIN BETA
     Dosage: 25 UG, QW
     Route: 065
     Dates: start: 20190216, end: 20190223
  16. MIRCERA [Concomitant]
     Active Substance: METHOXY POLYETHYLENE GLYCOL-EPOETIN BETA
     Dosage: 50 UG, QW
     Route: 065
     Dates: start: 20190420, end: 20190511
  17. MIRCERA [Concomitant]
     Active Substance: METHOXY POLYETHYLENE GLYCOL-EPOETIN BETA
     Dosage: 50 UG, QW
     Route: 065
     Dates: start: 20191005, end: 20191019
  18. MIRCERA [Concomitant]
     Active Substance: METHOXY POLYETHYLENE GLYCOL-EPOETIN BETA
     Dosage: 25 UG, QW
     Route: 065
     Dates: start: 20191026, end: 20191026
  19. MIRCERA [Concomitant]
     Active Substance: METHOXY POLYETHYLENE GLYCOL-EPOETIN BETA
     Dosage: 33.3 UG, QW
     Route: 065
     Dates: start: 20191116
  20. MIRCERA [Concomitant]
     Active Substance: METHOXY POLYETHYLENE GLYCOL-EPOETIN BETA
     Dosage: 50 UG, EVERYDAY
     Route: 065
     Dates: start: 20191102, end: 20191102

REACTIONS (1)
  - COVID-19 [Fatal]

NARRATIVE: CASE EVENT DATE: 20201229
